FAERS Safety Report 18214809 (Version 2)
Quarter: 2020Q3

REPORT INFORMATION
  Report Type: Spontaneous
  Country: SG (occurrence: SG)
  Receive Date: 20200831
  Receipt Date: 20200905
  Transmission Date: 20201103
  Serious: Yes (Other)
  Sender: FDA-Public Use
  Company Number: SG-009507513-2008SGP013217

PATIENT
  Age: 11 Year
  Sex: Female

DRUGS (1)
  1. SINGULAIR [Suspect]
     Active Substance: MONTELUKAST SODIUM
     Indication: ASTHMA
     Dosage: 10 MG
     Route: 048
     Dates: start: 201807, end: 202006

REACTIONS (3)
  - Incorrect dose administered [Unknown]
  - Drug withdrawal syndrome [Unknown]
  - Mood altered [Unknown]

NARRATIVE: CASE EVENT DATE: 201807
